FAERS Safety Report 8469957-6 (Version None)
Quarter: 2012Q2

REPORT INFORMATION
  Report Type: 
  Country: None (occurrence: None)
  Receive Date: 20120627
  Receipt Date: 20120621
  Transmission Date: 20120825
  Serious: No
  Sender: FDA-Public Use
  Company Number: US-BIOGENIDEC-2012BI006746

PATIENT
  Sex: Female

DRUGS (1)
  1. TYSABRI [Suspect]
     Indication: MULTIPLE SCLEROSIS
     Route: 042
     Dates: start: 20090917, end: 20111201

REACTIONS (5)
  - HEPATIC ENZYME INCREASED [None]
  - BURNING SENSATION [None]
  - HEPATIC ENZYME ABNORMAL [None]
  - MULTIPLE SCLEROSIS [None]
  - APHAGIA [None]
